FAERS Safety Report 6769173-X (Version None)
Quarter: 2010Q2

REPORT INFORMATION
  Report Type: 
  Country: None (occurrence: None)
  Receive Date: 20100520
  Receipt Date: 20090429
  Transmission Date: 20101027
  Serious: Yes (Disabling, Other)
  Sender: FDA-Public Use
  Company Number: 2008066990

PATIENT
  Age: 53 Year
  Sex: Female
  Weight: 61.7 kg

DRUGS (11)
  1. PROVERA [Suspect]
     Indication: HORMONE REPLACEMENT THERAPY
     Dosage: 2.5 MG, 5 MG, 10 MG, ORAL
     Route: 048
     Dates: start: 19970101, end: 20020101
  2. MEDROXYPROGESTERONE ACETATE [Suspect]
     Indication: MENOPAUSAL SYMPTOMS
     Dosage: 2.5 MG AND 10 MG ORAL
     Route: 048
     Dates: start: 19970101, end: 20000101
  3. ESTRACE [Suspect]
     Indication: HORMONE REPLACEMENT THERAPY
     Dosage: 1 MG AND 2 MG
     Dates: start: 19970101
  4. ESTRACE [Suspect]
     Indication: MENOPAUSAL SYMPTOMS
     Dosage: 1 MG AND 2 MG
     Dates: start: 19970101
  5. ESTRADIOL [Suspect]
     Indication: HORMONE REPLACEMENT THERAPY
     Dosage: 1 MG AND 2 MG
     Dates: start: 19970101, end: 20020101
  6. ESTRADIOL [Suspect]
     Indication: MENOPAUSAL SYMPTOMS
     Dosage: 1 MG AND 2 MG
     Dates: start: 19970101, end: 20020101
  7. ESTRATEST [Suspect]
     Indication: HORMONE REPLACEMENT THERAPY
     Dates: start: 20010101, end: 20020101
  8. PREMARIN [Suspect]
     Indication: MENOPAUSAL SYMPTOMS
     Dosage: 0.625 MG
     Dates: start: 19980101
  9. ESTROGENS () [Suspect]
     Dosage: 2 MG
     Dates: start: 19990101, end: 20020101
  10. METOPROLOL SUCCINATE [Concomitant]
  11. FOSINOPRIL SODIUM [Concomitant]

REACTIONS (1)
  - BREAST CANCER FEMALE [None]
